FAERS Safety Report 19476955 (Version 2)
Quarter: 2021Q3

REPORT INFORMATION
  Report Type: Spontaneous
  Country: US (occurrence: US)
  Receive Date: 20210630
  Receipt Date: 20210714
  Transmission Date: 20211014
  Serious: Yes (Other)
  Sender: FDA-Public Use
  Company Number: NVSC2021US143621

PATIENT
  Sex: Male
  Weight: 85 kg

DRUGS (2)
  1. KYMRIAH [Suspect]
     Active Substance: TISAGENLECLEUCEL
     Indication: ACUTE LYMPHOCYTIC LEUKAEMIA
  2. KYMRIAH [Suspect]
     Active Substance: TISAGENLECLEUCEL
     Indication: ACUTE LYMPHOCYTIC LEUKAEMIA
     Dosage: UNK UNK, ONCE/SINGLE (1.5X10^8 CAR T CELLS, INTRAVENOUS INTO BLOODSTREAM VIA VEIN)
     Route: 042

REACTIONS (5)
  - Confusional state [Recovering/Resolving]
  - Haemophagocytic lymphohistiocytosis [Unknown]
  - Aggression [Unknown]
  - Agitation [Unknown]
  - Cytokine release syndrome [Unknown]
